FAERS Safety Report 7544818-5 (Version None)
Quarter: 2011Q2

REPORT INFORMATION
  Report Type: 
  Country: None (occurrence: None)
  Receive Date: 20110614
  Receipt Date: 20100116
  Transmission Date: 20111010
  Serious: Yes (Death, Other)
  Sender: FDA-Public Use
  Company Number: US-BAYER-201011148NA

PATIENT
  Age: 55 Year
  Sex: Female
  Weight: 90.703 kg

DRUGS (13)
  1. LOPRESSOR [Concomitant]
     Dosage: 12.5 MG, BID
     Route: 048
  2. TRASYLOL [Suspect]
     Indication: CATHETERISATION CARDIAC
     Dosage: UNK
     Route: 042
     Dates: start: 20060516
  3. TRASYLOL [Suspect]
     Indication: AORTOGRAM
  4. PLAVIX [Concomitant]
     Dosage: 75 MG, QD
     Route: 048
  5. ACCUPRIL [Concomitant]
     Dosage: 10 MG, QD
     Route: 048
  6. TRASYLOL [Suspect]
     Indication: CARDIAC VENTRICULOGRAM LEFT
  7. TRASYLOL [Suspect]
     Indication: CORONARY ARTERIAL STENT INSERTION
  8. TRASYLOL [Suspect]
     Indication: CORONARY ARTERY BYPASS
     Route: 042
     Dates: start: 20060519
  9. TRASYLOL [Suspect]
     Indication: ARTERIOGRAM CORONARY
  10. ACETYLSALICYLIC ACID SRT [Concomitant]
     Dosage: 325 MG, QD
  11. ACETAMINOPHEN [Concomitant]
     Dosage: UNK UNK, PRN
  12. CLINDAMYCIN [Concomitant]
     Dosage: 450 MG, EVERY 6 HOURS
     Route: 048
  13. CIPROFLOXACIN [Concomitant]
     Dosage: 500 MG, HS

REACTIONS (15)
  - CARDIAC DISORDER [None]
  - ANXIETY [None]
  - FEAR [None]
  - CEREBROVASCULAR ACCIDENT [None]
  - DEATH [None]
  - RENAL IMPAIRMENT [None]
  - ORGAN FAILURE [None]
  - RENAL INJURY [None]
  - INJURY [None]
  - PAIN [None]
  - DEPRESSION [None]
  - UNEVALUABLE EVENT [None]
  - RENAL FAILURE [None]
  - MYOCARDIAL INFARCTION [None]
  - ANHEDONIA [None]
